FAERS Safety Report 6247415-7 (Version None)
Quarter: 2009Q2

REPORT INFORMATION
  Report Type: 
  Country: None (occurrence: None)
  Receive Date: 20090626
  Receipt Date: 20090622
  Transmission Date: 20091009
  Serious: Yes (Disabling)
  Sender: FDA-Public Use
  Company Number: GB-PFIZER INC-2009230323

PATIENT
  Age: 71 Year

DRUGS (2)
  1. LIPITOR [Suspect]
     Indication: LIPID METABOLISM DISORDER
     Dosage: UNK
  2. AMITRIPTYLINE HYDROCHLORIDE [Concomitant]

REACTIONS (3)
  - BALANCE DISORDER [None]
  - DYSKINESIA [None]
  - PAIN IN EXTREMITY [None]
